FAERS Safety Report 4438466-3 (Version None)
Quarter: 2004Q3

REPORT INFORMATION
  Report Type: 
  Country: None (occurrence: None)
  Receive Date: 20040728
  Receipt Date: 20040324
  Transmission Date: 20050211
  Serious: No
  Sender: FDA-Public Use
  Company Number: USA040362998

PATIENT
  Age: 7 Year
  Sex: Female

DRUGS (1)
  1. STRATTERA [Suspect]
     Indication: ATTENTION DEFICIT/HYPERACTIVITY DISORDER
     Dosage: 25 MG DAY
     Dates: start: 20031001

REACTIONS (8)
  - DISTURBANCE IN ATTENTION [None]
  - DRUG EFFECT DECREASED [None]
  - EMOTIONAL DISTRESS [None]
  - FATIGUE [None]
  - MOOD ALTERED [None]
  - STOMACH DISCOMFORT [None]
  - URINARY INCONTINENCE [None]
  - URINE ODOUR ABNORMAL [None]
